FAERS Safety Report 5537542-1 (Version None)
Quarter: 2007Q4

REPORT INFORMATION
  Report Type: 
  Country: None (occurrence: None)
  Receive Date: 20071207
  Receipt Date: 20061112
  Transmission Date: 20080405
  Serious: No
  Sender: FDA-Public Use
  Company Number: US-AMGEN-KDL200114

PATIENT
  Sex: Male

DRUGS (2)
  1. ENBREL [Suspect]
     Indication: PSORIATIC ARTHROPATHY
     Route: 058
     Dates: start: 20060604
  2. ARAVA [Concomitant]
     Dates: start: 19990101

REACTIONS (2)
  - CHEST PAIN [None]
  - UPPER RESPIRATORY TRACT INFECTION [None]
